FAERS Safety Report 25742563 (Version 1)
Quarter: 2025Q3

REPORT INFORMATION
  Report Type: Spontaneous
  Country: CN (occurrence: CN)
  Receive Date: 20250829
  Receipt Date: 20250829
  Transmission Date: 20251020
  Serious: Yes (Hospitalization)
  Sender: GE HEALTHCARE
  Company Number: None

PATIENT
  Age: 78 Year
  Sex: Male
  Weight: 65 kg

DRUGS (4)
  1. VISIPAQUE [Suspect]
     Active Substance: IODIXANOL
     Indication: Imaging procedure
     Route: 013
     Dates: start: 20250730, end: 20250730
  2. VISIPAQUE [Suspect]
     Active Substance: IODIXANOL
     Indication: Carotid artery stent insertion
  3. DEXAMETHASONE [Concomitant]
     Active Substance: DEXAMETHASONE
     Indication: Imaging procedure
     Dosage: 10 MG, QD
     Route: 042
     Dates: start: 20250730, end: 20250730
  4. LIDOCAINE HYDROCHLORIDE [Concomitant]
     Active Substance: LIDOCAINE HYDROCHLORIDE
     Indication: Imaging procedure
     Dosage: 0.1 GM, QD
     Route: 061
     Dates: start: 20250730, end: 20250730

REACTIONS (4)
  - Memory impairment [Recovering/Resolving]
  - Disorientation [Recovering/Resolving]
  - Vision blurred [Recovering/Resolving]
  - Headache [Recovering/Resolving]

NARRATIVE: CASE EVENT DATE: 20250730
